FAERS Safety Report 5249514-5 (Version None)
Quarter: 2007Q1

REPORT INFORMATION
  Report Type: 
  Country: None (occurrence: None)
  Receive Date: 20070228
  Receipt Date: 20060208
  Transmission Date: 20070707
  Serious: No
  Sender: FDA-Public Use
  Company Number: US-GLAXOSMITHKLINE-A0086782A

PATIENT
  Age: 70 Year
  Sex: Female

DRUGS (7)
  1. IMITREX [Suspect]
     Indication: MIGRAINE
     Route: 058
  2. IMITREX [Suspect]
     Route: 048
     Dates: start: 19950101
  3. IMITREX [Suspect]
     Route: 045
  4. CEFTIN [Concomitant]
  5. ZESTRIL [Concomitant]
  6. ECHINACEA [Concomitant]
     Indication: INFLUENZA
  7. FEVER FEW [Concomitant]

REACTIONS (6)
  - ABDOMINAL DISCOMFORT [None]
  - FEELING ABNORMAL [None]
  - INFLUENZA [None]
  - NERVOUSNESS [None]
  - PARAESTHESIA [None]
  - THERAPEUTIC RESPONSE DELAYED [None]
